FAERS Safety Report 15231333 (Version 4)
Quarter: 2018Q4

REPORT INFORMATION
  Report Type: Report from Study
  Country: BR (occurrence: BR)
  Receive Date: 20180802
  Receipt Date: 20181113
  Transmission Date: 20190204
  Serious: Yes (Death, Life-Threatening, Hospitalization)
  Sender: FDA-Public Use
  Company Number: BR-ROCHE-2144731

PATIENT
  Age: 71 Year
  Sex: Male
  Weight: 87 kg

DRUGS (32)
  1. HALDOL [Concomitant]
     Active Substance: HALOPERIDOL
     Indication: RESTLESSNESS
     Route: 030
     Dates: start: 20180621, end: 20180621
  2. DIPYRONE [Concomitant]
     Active Substance: DIPYRONE
     Indication: BACK PAIN
     Route: 048
     Dates: start: 201803, end: 201806
  3. ATEZOLIZUMAB. [Suspect]
     Active Substance: ATEZOLIZUMAB
     Indication: MALIGNANT MELANOMA
     Route: 042
     Dates: start: 20180606
  4. CAPTOPRIL. [Concomitant]
     Active Substance: CAPTOPRIL
     Indication: PROPHYLAXIS
     Route: 048
     Dates: start: 20180621, end: 20180621
  5. CLEXANE [Concomitant]
     Active Substance: ENOXAPARIN SODIUM
     Dosage: ANTICOAGULANT
     Route: 058
     Dates: start: 20180622, end: 20180627
  6. OMEPRAZOLE. [Concomitant]
     Active Substance: OMEPRAZOLE
     Route: 042
     Dates: start: 20180625, end: 20180701
  7. MIDAZOLAM [Concomitant]
     Active Substance: MIDAZOLAM HYDROCHLORIDE
     Indication: SEDATION
     Route: 042
     Dates: start: 20180624, end: 20180626
  8. CEFTRIAXONE. [Concomitant]
     Active Substance: CEFTRIAXONE
     Route: 042
     Dates: start: 20180622, end: 20180623
  9. PREDNISOLONE. [Concomitant]
     Active Substance: PREDNISOLONE
     Route: 048
  10. CEFTRIAXONA [Concomitant]
     Active Substance: CEFTRIAXONE
     Route: 042
     Dates: start: 20180622, end: 20180623
  11. FENTANIL [Concomitant]
     Active Substance: FENTANYL
     Route: 042
     Dates: start: 20180627, end: 20180701
  12. METRONIDAZOL [Concomitant]
     Active Substance: METRONIDAZOLE
     Indication: INFECTION
     Route: 042
     Dates: start: 20180628, end: 20180701
  13. REGULAR HUMAN INSULIN [Concomitant]
     Route: 058
     Dates: start: 20180701, end: 20180701
  14. NORADRENALINE [Concomitant]
     Active Substance: NOREPINEPHRINE
     Indication: BLOOD PRESSURE MEASUREMENT
     Route: 065
     Dates: start: 20180702, end: 20180702
  15. ALBUMIN [Concomitant]
     Active Substance: ALBUMIN HUMAN
     Dosage: 1 UNIT
     Route: 042
     Dates: start: 20180629, end: 20180701
  16. FLUCONAZOL [Concomitant]
     Active Substance: FLUCONAZOLE
     Indication: INFECTION
     Route: 042
     Dates: start: 20180627, end: 20180701
  17. TAZOBAC [Concomitant]
     Active Substance: PIPERACILLIN SODIUM\TAZOBACTAM SODIUM
     Indication: INFECTION
     Route: 042
     Dates: start: 20180624, end: 20180701
  18. DORENE [Concomitant]
     Indication: BACK PAIN
     Route: 048
     Dates: start: 201805, end: 201806
  19. DIMORF [Concomitant]
     Active Substance: MORPHINE SULFATE
     Indication: PAIN
     Route: 048
     Dates: start: 201805, end: 201806
  20. NOVALGIN (METAMIZOLE SODIUM) [Concomitant]
     Active Substance: METAMIZOLE SODIUM
     Indication: BACK PAIN
     Route: 048
     Dates: start: 201803, end: 201806
  21. OMEPRAZOLE. [Concomitant]
     Active Substance: OMEPRAZOLE
     Indication: PROPHYLAXIS
     Route: 042
     Dates: start: 20180623, end: 20180623
  22. AZITROMICIN [Concomitant]
     Active Substance: AZITHROMYCIN
     Route: 050
     Dates: start: 20180622, end: 20180624
  23. RED BLOOD CELL CONCENTRATE [Concomitant]
     Active Substance: HUMAN RED BLOOD CELL
     Dosage: 2 UNITS?HEMATOQUESIA
     Route: 042
     Dates: start: 20180701, end: 20180701
  24. VITAMIN K [Concomitant]
     Active Substance: PHYTONADIONE
     Dosage: HEMATOQUESIA?1AMPULE
     Route: 042
     Dates: start: 20180702, end: 20180702
  25. VANCOMICINA [Concomitant]
     Active Substance: VANCOMYCIN
     Indication: INFECTION
     Route: 042
     Dates: start: 20180702, end: 20180702
  26. RANITIDINE. [Concomitant]
     Active Substance: RANITIDINE
     Indication: PROPHYLAXIS
     Route: 042
     Dates: start: 20180621, end: 20180621
  27. METAMIZOLE [Concomitant]
     Active Substance: METAMIZOLE
     Indication: PROPHYLAXIS
     Route: 042
     Dates: start: 20180622, end: 20180629
  28. MIDAZOLAM [Concomitant]
     Active Substance: MIDAZOLAM HYDROCHLORIDE
     Route: 042
     Dates: start: 20180629, end: 20180630
  29. REGULAR HUMAN INSULIN [Concomitant]
     Indication: HYPERGLYCAEMIA
     Dosage: HYPERGLYCEMIA SECONDARY TO CORTICOSTEROIDS
     Route: 058
     Dates: start: 20180630, end: 20180630
  30. FUROSEMIDA [Concomitant]
     Active Substance: FUROSEMIDE
     Indication: FLUID RETENTION
     Route: 042
     Dates: start: 20180629, end: 20180701
  31. TRAMAL [Concomitant]
     Active Substance: TRAMADOL
     Indication: PAIN
     Route: 048
     Dates: start: 201804, end: 20180606
  32. AZITHROMYCIN ANHYDROUS. [Concomitant]
     Active Substance: AZITHROMYCIN ANHYDROUS
     Route: 050
     Dates: start: 20180622, end: 20180624

REACTIONS (2)
  - Dyspnoea [Not Recovered/Not Resolved]
  - Diarrhoea [Fatal]

NARRATIVE: CASE EVENT DATE: 20180613
